FAERS Safety Report 9858037 (Version 1)
Quarter: 2014Q1

REPORT INFORMATION
  Report Type: Other
  Country: US (occurrence: US)
  Receive Date: 20140131
  Receipt Date: 20140131
  Transmission Date: 20141002
  Serious: Yes (Hospitalization)
  Sender: FDA-Public Use
  Company Number: US-SHIRE-ALL1-2014-00579

PATIENT
  Sex: Female

DRUGS (1)
  1. FIRAZYR [Suspect]
     Indication: HEREDITARY ANGIOEDEMA
     Dosage: 30 MG, UNKNOWN
     Route: 058

REACTIONS (4)
  - Meniscus injury [Unknown]
  - Arthritis [Not Recovered/Not Resolved]
  - Tendonitis [Unknown]
  - Contusion [Not Recovered/Not Resolved]
